FAERS Safety Report 19732708 (Version 11)
Quarter: 2025Q4

REPORT INFORMATION
  Report Type: Spontaneous
  Country: EU (occurrence: EU)
  Receive Date: 20210823
  Receipt Date: 20251001
  Transmission Date: 20260117
  Serious: Yes (Hospitalization, Other)
  Sender: CELLTRION
  Company Number: EU-CELLTRION INC.-2021PL011145

PATIENT

DRUGS (18)
  1. RITUXIMAB [Suspect]
     Active Substance: RITUXIMAB
     Indication: Neoplasm prophylaxis
     Dosage: UNK
     Route: 065
  2. RITUXIMAB [Suspect]
     Active Substance: RITUXIMAB
     Indication: Prophylaxis
     Dosage: UNK
     Route: 065
  3. MYCOPHENOLATE MOFETIL [Suspect]
     Active Substance: MYCOPHENOLATE MOFETIL
     Indication: Prophylaxis against graft versus host disease
     Dosage: UNK
     Route: 065
  4. MYCOPHENOLATE MOFETIL [Suspect]
     Active Substance: MYCOPHENOLATE MOFETIL
     Indication: Prophylaxis
     Dosage: UNK
     Route: 065
  5. MYCOPHENOLATE MOFETIL [Suspect]
     Active Substance: MYCOPHENOLATE MOFETIL
     Dosage: UNK
     Route: 065
  6. CYCLOSPORINE [Suspect]
     Active Substance: CYCLOSPORINE
     Indication: Prophylaxis against graft versus host disease
     Dosage: ADDITIONAL INFORMATION ON DRUG (CODED): OFF LABEL USE
     Route: 065
  7. CYCLOSPORINE [Suspect]
     Active Substance: CYCLOSPORINE
     Indication: Prophylaxis
     Dosage: UNK
     Route: 065
  8. FLUDARABINE PHOSPHATE [Suspect]
     Active Substance: FLUDARABINE PHOSPHATE
     Indication: Bone marrow transplant
     Dosage: 40 MG/M2, QD (1/DAY) / ADDITIONAL INFORMATION ON DRUG (CODED): OFF LABEL USE
     Route: 065
  9. FLUDARABINE PHOSPHATE [Suspect]
     Active Substance: FLUDARABINE PHOSPHATE
     Dosage: 40 MG/M2, QD (FROM -5 TO -2)
     Route: 065
  10. MYCOPHENOLATE MOFETIL [Suspect]
     Active Substance: MYCOPHENOLATE MOFETIL
     Indication: Prophylaxis
     Dosage: UNK
     Route: 065
  11. BUSULFAN [Suspect]
     Active Substance: BUSULFAN
     Indication: Bone marrow transplant
     Dosage: 5.1 MG/KG, QD (1/DAY)
     Route: 065
  12. BUSULFAN [Suspect]
     Active Substance: BUSULFAN
     Dosage: 5.1 MG/KG, QD (FROM -5 TO -2); FORMULATION: INJECTION
     Route: 065
  13. BUSULFAN [Suspect]
     Active Substance: BUSULFAN
     Dosage: 4 X 5.1 MG/KG/DAY, FROM -5 TO -2
     Route: 065
  14. BUSULFAN [Suspect]
     Active Substance: BUSULFAN
     Dosage: 5.1 MG/KG, QD (1/DAY)/ 5.1 MG/KG, QD (FROM -5 TO -2), INJECTION
     Route: 065
  15. THYMOGLOBULIN [Suspect]
     Active Substance: LAPINE T-LYMPHOCYTE IMMUNE GLOBULIN
     Indication: Bone marrow transplant
     Dosage: 2.5 MG/KG, UNK (FROM -5 TO -2)
     Route: 065
  16. THYMOGLOBULIN [Suspect]
     Active Substance: LAPINE T-LYMPHOCYTE IMMUNE GLOBULIN
     Dosage: 4 X 2.5 MG/KG BW/DAY, FROM -5 TO -2
     Route: 065
  17. THYMOGLOBULIN [Suspect]
     Active Substance: LAPINE T-LYMPHOCYTE IMMUNE GLOBULIN
     Dosage: 2.5 MG/KG, UNK
     Route: 065
  18. BUSULFAN [Concomitant]
     Active Substance: BUSULFAN
     Indication: Product used for unknown indication
     Dosage: 4 X 5.1 MG/KG/DAY, FROM -5 TO -2
     Route: 065

REACTIONS (6)
  - Acute graft versus host disease [Recovering/Resolving]
  - Cushing^s syndrome [Unknown]
  - Post transplant lymphoproliferative disorder [Unknown]
  - Graft versus host disease in gastrointestinal tract [Recovering/Resolving]
  - Bacteraemia [Unknown]
  - Off label use [Unknown]
